FAERS Safety Report 23336640 (Version 1)
Quarter: 2023Q4

REPORT INFORMATION
  Report Type: Spontaneous
  Country: US (occurrence: US)
  Receive Date: 20231226
  Receipt Date: 20231226
  Transmission Date: 20240110
  Serious: Yes (Hospitalization)
  Sender: FDA-Public Use
  Company Number: US-NOVOPROD-1154743

PATIENT
  Age: 30 Year
  Sex: Female

DRUGS (1)
  1. OZEMPIC [Suspect]
     Active Substance: SEMAGLUTIDE
     Indication: Type 2 diabetes mellitus
     Dosage: 1 MG, QW
     Route: 058
     Dates: start: 202102, end: 202309

REACTIONS (3)
  - Intestinal obstruction [Recovered/Resolved with Sequelae]
  - Dehydration [Unknown]
  - Impaired gastric emptying [Recovered/Resolved with Sequelae]

NARRATIVE: CASE EVENT DATE: 20230901
